FAERS Safety Report 7700964-4 (Version None)
Quarter: 2011Q3

REPORT INFORMATION
  Report Type: 
  Country: None (occurrence: None)
  Receive Date: 20110822
  Receipt Date: 20110816
  Transmission Date: 20111222
  Serious: Yes (Other)
  Sender: FDA-Public Use
  Company Number: US-ROCHE-797784

PATIENT
  Sex: Female

DRUGS (1)
  1. BONIVA [Suspect]
     Dosage: PILL
     Route: 065
     Dates: start: 20110101

REACTIONS (3)
  - NEUROPATHY PERIPHERAL [None]
  - APPENDICECTOMY [None]
  - MALAISE [None]
